FAERS Safety Report 6426660-1 (Version None)
Quarter: 2009Q4

REPORT INFORMATION
  Report Type: 
  Country: None (occurrence: None)
  Receive Date: 20091030
  Receipt Date: 20091015
  Transmission Date: 20100525
  Serious: Yes (Life-Threatening, Hospitalization)
  Sender: FDA-Public Use
  Company Number: GB-DEXPHARM-20091705

PATIENT
  Age: 39 Year
  Sex: Male

DRUGS (9)
  1. OMEPRAZOLE [Suspect]
     Dosage: DOSAGE TEXT: OVERDOSED ON A WEEK'S SUPPLY
     Dates: start: 20090217
  2. SIMAVASTATIN [Suspect]
     Indication: BLOOD CHOLESTEROL INCREASED
     Dosage: OVEROSED ON A WEEK'S SUPPLY ORAL
     Route: 048
     Dates: start: 20090217
  3. METFORMIN HCL [Suspect]
     Indication: TYPE 2 DIABETES MELLITUS
     Dosage: SEE IMAGE
     Route: 048
     Dates: start: 20090217
  4. CLOMIPRAMINE [Suspect]
     Indication: ANXIETY
     Dosage: OVERDOSED ON A WEEK'S SUPPLY ORAL
     Route: 048
     Dates: start: 20090217
  5. CLOZARIL [Suspect]
     Indication: SCHIZOPHRENIA
     Dosage: SEE IMAGE
     Route: 048
     Dates: start: 20031202
  6. HYOSCINE HBR HYT [Suspect]
     Dosage: OVERDOSED ON A WEEK'S SUPPLY
     Dates: start: 20090217
  7. LISINOPRIL [Suspect]
     Dosage: SEE IMAGE
     Route: 048
     Dates: start: 20090217
  8. SENNA [Suspect]
     Indication: CONSTIPATION
     Dosage: OVERDOSED ON A WEEK'S SUPPLY ORAL
     Route: 048
  9. THIAMIDE [Concomitant]

REACTIONS (6)
  - AGITATION [None]
  - ALCOHOL USE [None]
  - DEPRESSED LEVEL OF CONSCIOUSNESS [None]
  - MULTIPLE DRUG OVERDOSE [None]
  - NEUTROPHIL COUNT INCREASED [None]
  - WHITE BLOOD CELL COUNT INCREASED [None]
